FAERS Safety Report 22213874 (Version 1)
Quarter: 2023Q2

REPORT INFORMATION
  Report Type: Spontaneous
  Country: None (occurrence: US)
  Receive Date: 20230414
  Receipt Date: 20230414
  Transmission Date: 20230721
  Serious: No
  Sender: FDA-Public Use
  Company Number: US-Hisamitsu Pharmaceutical-2140376

PATIENT
  Sex: Female

DRUGS (2)
  1. SALONPAS PAIN RELIEF [Suspect]
     Active Substance: MENTHOL\METHYL SALICYLATE
     Indication: Analgesic therapy
     Route: 003
  2. SALONPAS PAIN RELIEF [Suspect]
     Active Substance: MENTHOL\METHYL SALICYLATE

REACTIONS (4)
  - Application site erythema [None]
  - Application site warmth [None]
  - Abdominal pain upper [None]
  - Constipation [None]

NARRATIVE: CASE EVENT DATE: 20230209
